FAERS Safety Report 10718257 (Version 1)
Quarter: 2015Q1

REPORT INFORMATION
  Report Type: Spontaneous
  Country: US (occurrence: US)
  Receive Date: 20150118
  Receipt Date: 20150118
  Transmission Date: 20150721
  Serious: No
  Sender: FDA-Public Use
  Company Number: US-ASTRAZENECA-2015SE00778

PATIENT
  Age: 40 Year
  Sex: Female

DRUGS (2)
  1. NEXIUM [Suspect]
     Active Substance: ESOMEPRAZOLE MAGNESIUM
     Indication: DYSPEPSIA
     Route: 048
     Dates: start: 2013
  2. EXFORTE [Concomitant]
     Indication: HYPERTENSION

REACTIONS (3)
  - Off label use [Unknown]
  - Product use issue [Unknown]
  - Gastric disorder [Unknown]

NARRATIVE: CASE EVENT DATE: 2013
